FAERS Safety Report 21418825 (Version 1)
Quarter: 2022Q4

REPORT INFORMATION
  Report Type: Report from Study
  Country: DE (occurrence: DE)
  Receive Date: 20221006
  Receipt Date: 20221006
  Transmission Date: 20230113
  Serious: Yes (Hospitalization)
  Sender: FDA-Public Use
  Company Number: DE-MYLANLABS-2022M1086413

PATIENT
  Sex: Male

DRUGS (12)
  1. METHOTREXATE [Suspect]
     Active Substance: METHOTREXATE
     Indication: Rheumatoid arthritis
     Dosage: 20 MILLIGRAM, UNIT DOSE : 20 MG, THERAPY END DATE : ASKU
     Route: 065
     Dates: start: 20140814
  2. METHOTREXATE [Suspect]
     Active Substance: METHOTREXATE
     Dosage: 10 MILLIGRAM, UNIT DOSE : 10 MG, THERAPY END DATE : ASKU
     Route: 065
     Dates: start: 20190322
  3. METHOTREXATE [Suspect]
     Active Substance: METHOTREXATE
     Dosage: 20 MILLIGRAM, UNIT DOSE : 20 MG, THERAPY END DATE : ASKU
     Route: 065
     Dates: start: 20180125
  4. METHOTREXATE [Suspect]
     Active Substance: METHOTREXATE
     Dosage: 20 MILLIGRAM, UNIT DOSE : 20 MG, THERAPY END DATE : ASKU
     Route: 065
     Dates: start: 20170310
  5. METHOTREXATE [Suspect]
     Active Substance: METHOTREXATE
     Dosage: 20 MILLIGRAM, UNIT DOSE : 20 MG, THERAPY END DATE : ASKU
     Route: 065
     Dates: start: 20150813
  6. METHOTREXATE [Suspect]
     Active Substance: METHOTREXATE
     Dosage: 20 MILLIGRAM, UNIT DOSE : 20 MG, THERAPY END DATE : ASKU
     Route: 065
     Dates: start: 20160405
  7. METHOTREXATE [Suspect]
     Active Substance: METHOTREXATE
     Dosage: 20 MILLIGRAM, UNIT DOSE : 20 MG, THERAPY END DATE : ASKU
     Route: 065
     Dates: start: 20160803
  8. METHOTREXATE [Suspect]
     Active Substance: METHOTREXATE
     Dosage: 20 MILLIGRAM, UNIT DOSE : 20 MG, THERAPY END DATE : ASKU
     Route: 065
     Dates: start: 20180803
  9. METHOTREXATE [Suspect]
     Active Substance: METHOTREXATE
     Dosage: 20 MILLIGRAM, UNIT DOSE : 20 MG, THERAPY END DATE : ASKU
     Route: 065
     Dates: start: 20150210
  10. METHOTREXATE [Suspect]
     Active Substance: METHOTREXATE
     Dosage: 20 MILLIGRAM, UNIT DOSE : 20 MG, THERAPY END DATE : ASKU
     Route: 065
     Dates: start: 20141113
  11. METHOTREXATE [Suspect]
     Active Substance: METHOTREXATE
     Dosage: 20 MILLIGRAM, UNIT DOSE : 20 MG, THERAPY END DATE : ASKU
     Route: 065
     Dates: start: 20170712
  12. HUMIRA [Suspect]
     Active Substance: ADALIMUMAB
     Indication: Rheumatoid arthritis
     Dosage: 40 MILLIGRAM, UNIT DOSE :   40MG, DURATION : 1 YEARS
     Route: 065
     Dates: start: 201408, end: 201509

REACTIONS (2)
  - Synovial cyst [Not Recovered/Not Resolved]
  - Impaired healing [Recovered/Resolved]

NARRATIVE: CASE EVENT DATE: 20181109
